FAERS Safety Report 9972212 (Version 1)
Quarter: 2014Q1

REPORT INFORMATION
  Report Type: Report from Study
  Country: US (occurrence: US)
  Receive Date: 20140306
  Receipt Date: 20140306
  Transmission Date: 20141002
  Serious: No
  Sender: FDA-Public Use
  Company Number: US-ABBVIE-13P-163-1151398-00

PATIENT
  Age: 66 Year
  Sex: Female
  Weight: 74 kg

DRUGS (12)
  1. HUMIRA [Suspect]
     Indication: CROHN^S DISEASE
     Dosage: 1 DOSE
     Dates: start: 20130913, end: 20130913
  2. HUMIRA [Suspect]
     Dosage: 1 DOSE
  3. HUMIRA [Suspect]
  4. DELZICOL [Concomitant]
     Indication: CROHN^S DISEASE
  5. CRESTOR [Concomitant]
     Indication: BLOOD CHOLESTEROL INCREASED
  6. PROZAC [Concomitant]
     Indication: FIBROMYALGIA
  7. ALBUTEROL [Concomitant]
     Indication: ASTHMA
  8. ALBUTEROL [Concomitant]
     Indication: ASTHMA
  9. ASMANEX [Concomitant]
     Indication: ASTHMA
  10. ADVAIR [Concomitant]
     Indication: ASTHMA
  11. MORPHINE [Concomitant]
     Indication: ARTHRALGIA
  12. OXYCODONE [Concomitant]
     Indication: ARTHRALGIA

REACTIONS (4)
  - Injection site mass [Not Recovered/Not Resolved]
  - Injection site pruritus [Not Recovered/Not Resolved]
  - Injection site mass [Recovered/Resolved]
  - Injection site pruritus [Recovered/Resolved]
